FAERS Safety Report 7330343-3 (Version None)
Quarter: 2011Q1

REPORT INFORMATION
  Report Type: 
  Country: None (occurrence: None)
  Receive Date: 20110304
  Receipt Date: 20110223
  Transmission Date: 20110831
  Serious: Yes (Hospitalization)
  Sender: FDA-Public Use
  Company Number: US-BIOGENIDEC-2011BI004387

PATIENT
  Age: 26 Year
  Sex: Female

DRUGS (1)
  1. TYSABRI [Suspect]
     Indication: MULTIPLE SCLEROSIS
     Route: 042
     Dates: start: 20100803

REACTIONS (9)
  - VULVOVAGINAL PAIN [None]
  - LOWER RESPIRATORY TRACT INFECTION FUNGAL [None]
  - ADVERSE DRUG REACTION [None]
  - VAGINAL INFECTION [None]
  - URINARY TRACT INFECTION [None]
  - PNEUMONIA [None]
  - PNEUMONIA ASPIRATION [None]
  - GASTRITIS [None]
  - MEMORY IMPAIRMENT [None]
